FAERS Safety Report 6287170-8 (Version None)
Quarter: 2009Q3

REPORT INFORMATION
  Report Type: 
  Country: None (occurrence: None)
  Receive Date: 20090716
  Receipt Date: 20090113
  Transmission Date: 20100115
  Serious: Yes (Hospitalization)
  Sender: FDA-Public Use
  Company Number: 2009BI001173

PATIENT
  Sex: Female
  Weight: 90.7194 kg

DRUGS (1)
  1. AVONEX [Suspect]
     Indication: MULTIPLE SCLEROSIS
     Dosage: 30 UG;QW;IM
     Dates: start: 20040604

REACTIONS (12)
  - ASTHENIA [None]
  - BLADDER DISORDER [None]
  - CONSTIPATION [None]
  - CYSTITIS [None]
  - DEPRESSION [None]
  - FATIGUE [None]
  - FIBROMYALGIA [None]
  - GAIT DISTURBANCE [None]
  - HALLUCINATION [None]
  - LOSS OF CONTROL OF LEGS [None]
  - MENTAL IMPAIRMENT [None]
  - ROAD TRAFFIC ACCIDENT [None]
